FAERS Safety Report 10237139 (Version 1)
Quarter: 2014Q2

REPORT INFORMATION
  Report Type: Spontaneous
  Country: US (occurrence: US)
  Receive Date: 20140613
  Receipt Date: 20140613
  Transmission Date: 20141212
  Serious: Yes (Hospitalization)
  Sender: FDA-Public Use
  Company Number: US-GLAXOSMITHKLINE-A1076425A

PATIENT
  Age: 51 Year
  Sex: Female

DRUGS (10)
  1. ADVAIR HFA [Suspect]
     Indication: CHRONIC OBSTRUCTIVE PULMONARY DISEASE
     Dosage: 1PUFF TWICE PER DAY
     Route: 055
     Dates: start: 2009
  2. VENTOLIN [Suspect]
     Indication: CHRONIC OBSTRUCTIVE PULMONARY DISEASE
     Dosage: 2PUFF AS REQUIRED
     Route: 055
     Dates: start: 2010
  3. SPIRIVA [Concomitant]
  4. ASPIRIN [Concomitant]
  5. ESTRADIOL [Concomitant]
  6. POTASSIUM [Concomitant]
  7. LASIX [Concomitant]
  8. METOPROLOL [Concomitant]
  9. STOOL SOFTENERS [Concomitant]
  10. INSULIN [Concomitant]

REACTIONS (2)
  - Cardiac operation [Unknown]
  - Off label use [Unknown]
